FAERS Safety Report 12615696 (Version 2)
Quarter: 2016Q4

REPORT INFORMATION
  Report Type: Spontaneous
  Country: US (occurrence: US)
  Receive Date: 20160802
  Receipt Date: 20161103
  Transmission Date: 20170207
  Serious: No
  Sender: FDA-Public Use
  Company Number: US-IMPAX LABORATORIES, INC-2016-IPXL-00625

PATIENT
  Age: 83 Year
  Sex: Male
  Weight: 58 kg

DRUGS (1)
  1. RYTARY [Suspect]
     Active Substance: CARBIDOPA\LEVODOPA
     Indication: PARKINSON^S DISEASE
     Dosage: 61.25/245 MG 3 CAPSULES 4 TIMES DAILY
     Route: 048
     Dates: start: 20151109

REACTIONS (5)
  - Bradykinesia [Recovering/Resolving]
  - Viral test positive [Recovering/Resolving]
  - Drug effect decreased [Recovering/Resolving]
  - Kyphosis [Unknown]
  - Fatigue [Unknown]

NARRATIVE: CASE EVENT DATE: 201603
